FAERS Safety Report 9122765 (Version 1)
Quarter: 2013Q1

REPORT INFORMATION
  Report Type: Spontaneous
  Country: US (occurrence: None)
  Receive Date: 20130225
  Receipt Date: 20130225
  Transmission Date: 20140127
  Serious: Yes (Life-Threatening)
  Sender: FDA-Public Use
  Company Number: None

PATIENT
  Age: 70 Year
  Sex: Male
  Weight: 95.3 kg

DRUGS (1)
  1. METOCLOPRAMIDE [Suspect]
     Indication: ADVERSE DRUG REACTION
     Dosage: 10 MG  EVERY 8 HOURS  IV
     Route: 042
     Dates: start: 20121229, end: 20130108

REACTIONS (4)
  - Dyskinesia [None]
  - Trismus [None]
  - Blood sodium increased [None]
  - Tremor [None]
